FAERS Safety Report 4553040-6 (Version None)
Quarter: 2005Q1

REPORT INFORMATION
  Report Type: 
  Country: None (occurrence: None)
  Receive Date: 20050113
  Receipt Date: 20050103
  Transmission Date: 20050727
  Serious: Yes (Hospitalization)
  Sender: FDA-Public Use
  Company Number: 2004205248FR

PATIENT
  Age: 36 Year
  Sex: Female
  Weight: 60 kg

DRUGS (3)
  1. SULFASALAZINE [Suspect]
     Indication: ILL-DEFINED DISORDER
     Dosage: 500 MG (500 MG, 1 IN 2 D), ORAL
     Route: 048
     Dates: start: 19940615
  2. LEFLUNOMIDE [Suspect]
     Indication: ILL-DEFINED DISORDER
     Dosage: 100 MG, ORAL
     Route: 048
     Dates: start: 20030715, end: 20040106
  3. PREDNISONE [Suspect]
     Indication: ILL-DEFINED DISORDER
     Dates: start: 19940615

REACTIONS (1)
  - PULMONARY TUBERCULOSIS [None]
